FAERS Safety Report 6538703-5 (Version None)
Quarter: 2010Q1

REPORT INFORMATION
  Report Type: 
  Country: None (occurrence: None)
  Receive Date: 20100113
  Receipt Date: 20100113
  Transmission Date: 20100710
  Serious: Yes (Hospitalization, Other)
  Sender: FDA-Public Use
  Company Number: None

PATIENT
  Age: 24 Year
  Sex: Female
  Weight: 57.1532 kg

DRUGS (4)
  1. IBUPROFEN [Suspect]
     Indication: TOOTH DISORDER
     Dates: start: 20071001, end: 20081001
  2. PENICILLIN [Suspect]
  3. HYDROCODONE BITARTRATE [Suspect]
  4. ISOVUE-370 [Suspect]

REACTIONS (8)
  - GASTROINTESTINAL DISORDER [None]
  - GENERAL PHYSICAL HEALTH DETERIORATION [None]
  - HEART RATE INCREASED [None]
  - HEART RATE IRREGULAR [None]
  - MITRAL VALVE INCOMPETENCE [None]
  - PALPITATIONS [None]
  - RASH [None]
  - WHITE BLOOD CELL COUNT DECREASED [None]
